FAERS Safety Report 5977959-4 (Version None)
Quarter: 2008Q4

REPORT INFORMATION
  Report Type: 
  Country: None (occurrence: None)
  Receive Date: 20081203
  Receipt Date: 20081113
  Transmission Date: 20090506
  Serious: No
  Sender: FDA-Public Use
  Company Number: US-B.I. PHARMACEUTICALS,INC./RIDGEFIELD-2008-BP-17211BP

PATIENT
  Sex: Female

DRUGS (2)
  1. MICARDIS [Suspect]
     Indication: BLOOD PRESSURE
     Dosage: 40MG
     Route: 048
     Dates: start: 20081001
  2. SYNTHROID [Concomitant]
     Indication: THYROID DISORDER
     Route: 048

REACTIONS (1)
  - PRURITUS [None]
